FAERS Safety Report 10519940 (Version 3)
Quarter: 2014Q4

REPORT INFORMATION
  Report Type: Report from Study
  Country: AR (occurrence: AR)
  Receive Date: 20141015
  Receipt Date: 20141024
  Transmission Date: 20150528
  Serious: Yes (Hospitalization)
  Sender: FDA-Public Use
  Company Number: AR-TEVA-512453USA

PATIENT
  Age: 72 Year
  Sex: Female

DRUGS (4)
  1. BENDAMUSTINE HYDROCHLORIDE [Suspect]
     Active Substance: BENDAMUSTINE HYDROCHLORIDE
     Indication: CHRONIC LYMPHOCYTIC LEUKAEMIA
     Dosage: UNK, UNKNOWN FREQ.
     Route: 042
  2. RITUXIMAB [Suspect]
     Active Substance: RITUXIMAB
     Indication: CHRONIC LYMPHOCYTIC LEUKAEMIA
     Dosage: UNK, UNKNOWN FREQ.
     Route: 042
  3. IBRUTINIB [Suspect]
     Active Substance: IBRUTINIB
     Indication: CHRONIC LYMPHOCYTIC LEUKAEMIA
     Route: 048
     Dates: start: 20140822, end: 20140911
  4. IBRUTINIB [Suspect]
     Active Substance: IBRUTINIB
     Dosage: UNK UNK, UNKNOWN FREQ.
     Route: 065
     Dates: start: 20140913

REACTIONS (1)
  - Lumbar spinal stenosis [Recovered/Resolved with Sequelae]

NARRATIVE: CASE EVENT DATE: 20140912
